FAERS Safety Report 6518540-8 (Version None)
Quarter: 2009Q4

REPORT INFORMATION
  Report Type: 
  Country: None (occurrence: None)
  Receive Date: 20091226
  Receipt Date: 20091216
  Transmission Date: 20100525
  Serious: Yes (Hospitalization, Other)
  Sender: FDA-Public Use
  Company Number: DE-JNJFOC-20091102971

PATIENT
  Sex: Male
  Weight: 76 kg

DRUGS (4)
  1. ETRAVIRINE [Suspect]
     Indication: HIV INFECTION
     Route: 048
     Dates: start: 20081204, end: 20081215
  2. TRUVADA [Concomitant]
     Indication: HIV INFECTION
     Route: 048
     Dates: start: 20080630, end: 20081215
  3. ISENTRESS [Concomitant]
     Indication: HIV INFECTION
     Route: 065
     Dates: start: 20081204, end: 20081215
  4. METFORMIN HCL [Concomitant]
     Indication: TYPE 2 DIABETES MELLITUS
     Route: 048
     Dates: start: 20081010, end: 20081215

REACTIONS (2)
  - GENOTYPE DRUG RESISTANCE TEST [None]
  - HEPATITIS C [None]
